FAERS Safety Report 18187412 (Version 2)
Quarter: 2020Q4

REPORT INFORMATION
  Report Type: Spontaneous
  Country: US (occurrence: US)
  Receive Date: 20200824
  Receipt Date: 20201120
  Transmission Date: 20210113
  Serious: No
  Sender: FDA-Public Use
  Company Number: US-PFIZER INC-2020324731

PATIENT
  Age: 56 Year
  Sex: Female
  Weight: 47.17 kg

DRUGS (1)
  1. NICOTROL [Suspect]
     Active Substance: NICOTINE
     Indication: EX-TOBACCO USER
     Dosage: 10 MG, AS NEEDED
     Dates: start: 2017

REACTIONS (1)
  - Dysarthria [Unknown]
